FAERS Safety Report 7396499-1 (Version None)
Quarter: 2011Q2

REPORT INFORMATION
  Report Type: 
  Country: None (occurrence: None)
  Receive Date: 20110406
  Receipt Date: 20110323
  Transmission Date: 20111010
  Serious: Yes (Hospitalization)
  Sender: FDA-Public Use
  Company Number: DE-ALEXION-A201001208

PATIENT
  Sex: Female

DRUGS (3)
  1. SOLIRIS [Suspect]
     Indication: PAROXYSMAL NOCTURNAL HAEMOGLOBINURIA
     Dosage: 600 MG, UNK
     Route: 042
     Dates: start: 20070901, end: 20071001
  2. SOLIRIS [Suspect]
     Dosage: 900 MG, UNK
     Dates: start: 20071001
  3. PANTOPRAZOLE SODIUM [Concomitant]
     Indication: REFLUX OESOPHAGITIS
     Dosage: 40 MG, UNK

REACTIONS (7)
  - VOMITING [None]
  - ABDOMINAL PAIN [None]
  - REFLUX OESOPHAGITIS [None]
  - JAUNDICE [None]
  - CHOLELITHIASIS [None]
  - BLOOD BILIRUBIN INCREASED [None]
  - BLOOD LACTATE DEHYDROGENASE INCREASED [None]
